APPROVED DRUG PRODUCT: AMOXICILLIN
Active Ingredient: AMOXICILLIN
Strength: 500MG
Dosage Form/Route: CAPSULE;ORAL
Application: A062528 | Product #002
Applicant: LABORATORIOS ATRAL SARL
Approved: Aug 7, 1985 | RLD: No | RS: No | Type: DISCN